FAERS Safety Report 24009512 (Version 1)
Quarter: 2024Q2

REPORT INFORMATION
  Report Type: Spontaneous
  Country: CA (occurrence: CA)
  Receive Date: 20240625
  Receipt Date: 20240625
  Transmission Date: 20240716
  Serious: Yes (Hospitalization, Other)
  Sender: FDA-Public Use
  Company Number: None

PATIENT
  Age: 74 Year
  Sex: Male

DRUGS (7)
  1. LENALIDOMIDE [Suspect]
     Active Substance: LENALIDOMIDE
     Indication: Plasma cell myeloma
  2. LENALIDOMIDE [Suspect]
     Active Substance: LENALIDOMIDE
  3. LENALIDOMIDE [Suspect]
     Active Substance: LENALIDOMIDE
  4. BORTEZOMIB [Suspect]
     Active Substance: BORTEZOMIB
     Indication: Plasma cell myeloma
     Route: 058
  5. DEXAMETHASONE [Suspect]
     Active Substance: DEXAMETHASONE
     Indication: Plasma cell myeloma
  6. DEXAMETHASONE [Suspect]
     Active Substance: DEXAMETHASONE
  7. DARATUMUMAB [Suspect]
     Active Substance: DARATUMUMAB
     Indication: Plasma cell myeloma
     Dosage: SOLUTION NTRAVENOUS
     Route: 042

REACTIONS (2)
  - Metastatic squamous cell carcinoma [Recovered/Resolved]
  - Squamous cell carcinoma [Recovered/Resolved]
